FAERS Safety Report 17457893 (Version 2)
Quarter: 2020Q1

REPORT INFORMATION
  Report Type: Spontaneous
  Country: FR (occurrence: FR)
  Receive Date: 20200225
  Receipt Date: 20200309
  Transmission Date: 20200409
  Serious: Yes (Life-Threatening, Hospitalization, Disabling, Other)
  Sender: FDA-Public Use
  Company Number: FR-IPSEN BIOPHARMACEUTICALS, INC.-2020-01103

PATIENT
  Age: 32 Year
  Sex: Female
  Weight: 84 kg

DRUGS (9)
  1. FOLIC ACID. [Concomitant]
     Active Substance: FOLIC ACID
  2. SOMATULINE L.P. [Suspect]
     Active Substance: LANREOTIDE ACETATE
     Route: 058
     Dates: start: 20160817
  3. CLIMASTON [Concomitant]
     Active Substance: DYDROGESTERONE\ESTRADIOL
     Dosage: 2 MG/10MG, 1 DF IN MORNING
  4. SOMATULINE L.P. [Suspect]
     Active Substance: LANREOTIDE ACETATE
     Indication: ACROMEGALY
     Route: 058
     Dates: start: 201510
  5. HYDROCORTISONE. [Concomitant]
     Active Substance: HYDROCORTISONE
     Dosage: PATIENT DISCHARGE TREATMENT : 1.5 TABLET IN THE MORNING + 1 TAB AT NOON + 1 TAB AT 4PM DAILY
     Dates: start: 2015
  6. NOVORAPID [Concomitant]
     Active Substance: INSULIN ASPART
     Dosage: 4 UNITS
     Dates: start: 20191209, end: 20191227
  7. LANTUS [Concomitant]
     Active Substance: INSULIN GLARGINE
     Dates: start: 20191209, end: 20191227
  8. SOMATULINE L.P. [Suspect]
     Active Substance: LANREOTIDE ACETATE
     Route: 058
     Dates: end: 20191230
  9. LEVOTHYROX [Concomitant]
     Active Substance: LEVOTHYROXINE
     Dosage: PATIENT DISCHARGE TREATMENT 125 MICROGRAM
     Dates: start: 2015

REACTIONS (2)
  - Hypoglycaemic coma [Recovering/Resolving]
  - Hypoglycaemia [Not Recovered/Not Resolved]

NARRATIVE: CASE EVENT DATE: 20191227
